FAERS Safety Report 7336999-3 (Version None)
Quarter: 2011Q1

REPORT INFORMATION
  Report Type: 
  Country: None (occurrence: None)
  Receive Date: 20110308
  Receipt Date: 20110215
  Transmission Date: 20110831
  Serious: Yes (Other)
  Sender: FDA-Public Use
  Company Number: US-BAYER-2011-015811

PATIENT
  Sex: Male
  Weight: 91 kg

DRUGS (4)
  1. ONE-A-DAY MEN'S HEALTH [Concomitant]
     Indication: VITAMIN SUPPLEMENTATION
     Dosage: UNK
     Route: 048
  2. FLAX SEED OIL [Concomitant]
     Indication: VITAMIN SUPPLEMENTATION
     Dosage: UNK
     Route: 048
  3. ASCORBIC ACID [Concomitant]
     Indication: VITAMIN SUPPLEMENTATION
     Dosage: UNK
     Route: 048
  4. ALEVE (CAPLET) [Suspect]
     Indication: SWELLING
     Dosage: UNK
     Route: 048
     Dates: start: 20110215

REACTIONS (4)
  - ASTHMA [None]
  - HYPERSENSITIVITY [None]
  - PHARYNGEAL OEDEMA [None]
  - SKIN DISCOMFORT [None]
